FAERS Safety Report 10459614 (Version 2)
Quarter: 2014Q4

REPORT INFORMATION
  Report Type: Report from Study
  Country: BR (occurrence: BR)
  Receive Date: 20140917
  Receipt Date: 20141111
  Transmission Date: 20150528
  Serious: Yes (Other)
  Sender: FDA-Public Use
  Company Number: BR-ABBVIE-14K-020-1283591-00

PATIENT
  Sex: Female
  Weight: 44 kg

DRUGS (10)
  1. INFLIXIMAB [Suspect]
     Active Substance: INFLIXIMAB
     Indication: PRODUCT USED FOR UNKNOWN INDICATION
     Route: 065
  2. HUMIRA [Suspect]
     Active Substance: ADALIMUMAB
     Route: 058
     Dates: start: 2014
  3. HUMIRA [Suspect]
     Active Substance: ADALIMUMAB
     Indication: RHEUMATOID ARTHRITIS
     Route: 058
     Dates: start: 20091101, end: 20140820
  4. DIOVAN [Concomitant]
     Active Substance: VALSARTAN
     Indication: HYPERTENSION
     Route: 048
     Dates: start: 2009
  5. DIOVAN [Concomitant]
     Active Substance: VALSARTAN
     Route: 048
     Dates: start: 2011
  6. ABLOK [Concomitant]
     Active Substance: ATENOLOL
     Indication: HYPERTENSION
     Route: 048
     Dates: start: 2009
  7. ABLOK [Concomitant]
     Active Substance: ATENOLOL
     Route: 048
     Dates: start: 2011
  8. CORTICOID [Concomitant]
     Active Substance: UNSPECIFIED INGREDIENT
     Indication: ARTHRITIS
     Route: 048
  9. LANSOPRAZOL [Concomitant]
     Active Substance: LANSOPRAZOLE
     Indication: GASTRIC DISORDER
     Route: 048
     Dates: start: 2013
  10. DIGEDRAT [Concomitant]
     Indication: GASTRIC DISORDER
     Route: 048
     Dates: start: 201410

REACTIONS (2)
  - Tooth fracture [Recovered/Resolved]
  - Benign neoplasm of thyroid gland [Not Recovered/Not Resolved]

NARRATIVE: CASE EVENT DATE: 2011
